FAERS Safety Report 4668681-5 (Version None)
Quarter: 2005Q2

REPORT INFORMATION
  Report Type: 
  Country: None (occurrence: None)
  Receive Date: 20050523
  Receipt Date: 20050401
  Transmission Date: 20051028
  Serious: Yes (Other)
  Sender: FDA-Public Use
  Company Number: PHEH2005US03877

PATIENT
  Age: 61 Year
  Sex: Male

DRUGS (10)
  1. LUPRON [Concomitant]
     Indication: PROSTATE CANCER
     Dates: start: 20030901
  2. PROSCAR [Concomitant]
     Indication: PROSTATE CANCER
     Dates: start: 20030801
  3. ARANESP [Concomitant]
     Indication: PROSTATE CANCER
     Dates: start: 20031101
  4. FAMOTIDINE [Concomitant]
     Indication: PROPHYLAXIS AGAINST GASTROINTESTINAL ULCER
  5. ALLOPURINOL [Concomitant]
     Indication: GOUT
     Dosage: UNK, UNK
  6. DETROL - SLOW RELEASE [Concomitant]
     Indication: BLADDER DISORDER
  7. ZOLEDRONATE [Suspect]
     Indication: PROSTATE CANCER
     Dosage: UNK, QMO
  8. TENPASEN OR TEMPAZEN [Concomitant]
  9. VITAMINS [Concomitant]
  10. XYLOCAINE [Concomitant]
     Indication: ANAESTHESIA
     Dosage: 14.4 CC INJECTION
     Dates: start: 20041025, end: 20041025

REACTIONS (14)
  - ABSCESS DRAINAGE [None]
  - ACTINOMYCOSIS [None]
  - BLOOD UREA INCREASED [None]
  - BONE DISORDER [None]
  - BONE TRIMMING [None]
  - GINGIVITIS [None]
  - INCISIONAL DRAINAGE [None]
  - JAW DISORDER [None]
  - LEUKOCYTOSIS [None]
  - OSTEOMYELITIS [None]
  - PERIODONTAL DISEASE [None]
  - RED CELL DISTRIBUTION WIDTH INCREASED [None]
  - TOOTH DISORDER [None]
  - TOOTH EXTRACTION [None]
